FAERS Safety Report 9156776 (Version 1)
Quarter: 2013Q1

REPORT INFORMATION
  Report Type: Spontaneous
  Country: US (occurrence: None)
  Receive Date: 20130211
  Receipt Date: 20130211
  Transmission Date: 20140127
  Serious: Yes (Hospitalization, Other)
  Sender: FDA-Public Use
  Company Number: DSU-2013-01024

PATIENT
  Age: 70 Year
  Sex: Female

DRUGS (2)
  1. BENICAR (OLMESARTA MEDOXOMIL) (20 MILLIGRAM, TABLET) (OLMESARTAN MEDOXOMIL) [Suspect]
     Indication: HYPERTENSION
     Dosage: 20 MG (20 MG, QD), PER ORAL
     Route: 048
     Dates: start: 2009
  2. HORMONE BLOCKER (HORMONE ANTAGONISTS AND RELATED AGENTS) [Concomitant]

REACTIONS (4)
  - Back pain [None]
  - Blood potassium abnormal [None]
  - Blood pressure increased [None]
  - Mastectomy [None]
